FAERS Safety Report 4957566-2 (Version None)
Quarter: 2006Q1

REPORT INFORMATION
  Report Type: 
  Country: None (occurrence: None)
  Receive Date: 20060330
  Receipt Date: 20060323
  Transmission Date: 20060701
  Serious: Yes (Life-Threatening, Other)
  Sender: FDA-Public Use
  Company Number: 2006GB00502

PATIENT
  Age: 62 Year
  Sex: Female
  Weight: 65 kg

DRUGS (9)
  1. ARIMIDEX [Suspect]
     Indication: BREAST CANCER
     Route: 048
     Dates: start: 20060304, end: 20060306
  2. IBUPROFEN [Concomitant]
     Indication: ANALGESIC EFFECT
     Route: 048
  3. ASPIRIN [Concomitant]
     Route: 048
  4. OMEPRAZOLE [Concomitant]
     Indication: GASTROOESOPHAGEAL REFLUX DISEASE
     Route: 065
  5. CO-CODAMOL [Concomitant]
     Indication: ANALGESIC EFFECT
     Route: 048
  6. AMITRIPTYLINE [Concomitant]
     Route: 048
  7. RANITIDINE [Concomitant]
     Indication: GASTROOESOPHAGEAL REFLUX DISEASE
     Route: 048
  8. SLOZEM [Concomitant]
     Route: 048
  9. ACETAMINOPHEN [Concomitant]
     Route: 065

REACTIONS (2)
  - BLOOD GLUCOSE INCREASED [None]
  - MALAISE [None]
